FAERS Safety Report 8464587-4 (Version None)
Quarter: 2012Q2

REPORT INFORMATION
  Report Type: 
  Country: None (occurrence: None)
  Receive Date: 20120626
  Receipt Date: 20120612
  Transmission Date: 20120825
  Serious: Yes (Death, Other)
  Sender: FDA-Public Use
  Company Number: US-RANBAXY-2012US-57198

PATIENT
  Sex: Female
  Weight: 59 kg

DRUGS (7)
  1. AMLODIPINE [Concomitant]
     Indication: HYPERTENSION
     Dosage: 0.2MG,DAILY
     Route: 065
  2. ASPIRIN [Concomitant]
     Indication: CARDIAC DISORDER
     Dosage: 325MG,DAILY
     Route: 065
  3. VITAMIN D [Concomitant]
     Indication: PRODUCT USED FOR UNKNOWN INDICATION
     Dosage: 1000 IU,DAILY
     Route: 065
  4. ATORVASTATIN [Suspect]
     Indication: CORONARY ARTERY DISEASE
  5. ATORVASTATIN [Suspect]
     Indication: BLOOD CHOLESTEROL INCREASED
     Dosage: 20 MG,DAILY
     Route: 065
     Dates: start: 20120101, end: 20120429
  6. CALCIUM [Concomitant]
     Indication: PRODUCT USED FOR UNKNOWN INDICATION
     Dosage: 1200MG,DAILY
     Route: 065
  7. ACETAMINOPHEN [Concomitant]
     Indication: CARDIAC DISORDER
     Route: 065

REACTIONS (4)
  - FATIGUE [None]
  - ARTHRITIS [None]
  - MYALGIA [None]
  - MUSCLE SPASMS [None]
